FAERS Safety Report 24379669 (Version 2)
Quarter: 2025Q1

REPORT INFORMATION
  Report Type: Spontaneous
  Country: CA (occurrence: CA)
  Receive Date: 20240930
  Receipt Date: 20250312
  Transmission Date: 20250408
  Serious: Yes (Death, Other)
  Sender: PURDUE
  Company Number: CA-PURDUE-USA-2024-0312185

PATIENT
  Age: 36 Year
  Sex: Female

DRUGS (94)
  1. MORPHINE SULFATE [Suspect]
     Active Substance: MORPHINE SULFATE
     Indication: Product used for unknown indication
     Route: 065
  2. HYDROMORPHONE HYDROCHLORIDE [Suspect]
     Active Substance: HYDROMORPHONE HYDROCHLORIDE
     Indication: Product used for unknown indication
     Route: 065
  3. CODEINE [Suspect]
     Active Substance: CODEINE
     Indication: Product used for unknown indication
     Route: 065
  4. SENNOSIDES A AND B [Suspect]
     Active Substance: SENNOSIDES A AND B
     Indication: Product used for unknown indication
     Route: 065
  5. SENNOSIDES A AND B [Suspect]
     Active Substance: SENNOSIDES A AND B
     Indication: Product used for unknown indication
     Route: 065
  6. SENNOSIDES A AND B [Suspect]
     Active Substance: SENNOSIDES A AND B
     Indication: Product used for unknown indication
     Route: 065
  7. SENOKOT [Suspect]
     Active Substance: SENNOSIDES
     Indication: Product used for unknown indication
     Route: 065
  8. CALCIUM SENNOSIDES [Suspect]
     Active Substance: SENNOSIDES
     Indication: Product used for unknown indication
     Route: 065
  9. ABACAVIR SULFATE [Suspect]
     Active Substance: ABACAVIR SULFATE
     Indication: Product used for unknown indication
     Route: 065
  10. ABACAVIR SULFATE\DOLUTEGRAVIR SODIUM\LAMIVUDINE [Suspect]
     Active Substance: ABACAVIR SULFATE\DOLUTEGRAVIR SODIUM\LAMIVUDINE
     Indication: Product used for unknown indication
     Route: 065
  11. ACETAMINOPHEN AND CODEINE [Suspect]
     Active Substance: ACETAMINOPHEN\CODEINE PHOSPHATE
     Indication: Product used for unknown indication
     Route: 065
  12. ACETAMINOPHEN\OXYCODONE HYDROCHLORIDE [Suspect]
     Active Substance: ACETAMINOPHEN\OXYCODONE HYDROCHLORIDE
     Indication: Product used for unknown indication
     Route: 065
  13. ASPIRIN\OXYCODONE HYDROCHLORIDE\OXYCODONE TEREPHTHALATE [Suspect]
     Active Substance: ASPIRIN\OXYCODONE HYDROCHLORIDE\OXYCODONE TEREPHTHALATE
     Indication: Product used for unknown indication
     Route: 065
  14. ACTEMRA [Suspect]
     Active Substance: TOCILIZUMAB
     Indication: Rheumatoid arthritis
     Route: 059
  15. ACTEMRA [Suspect]
     Active Substance: TOCILIZUMAB
     Route: 058
  16. ACTEMRA [Suspect]
     Active Substance: TOCILIZUMAB
     Route: 065
  17. ACTEMRA [Suspect]
     Active Substance: TOCILIZUMAB
     Route: 058
  18. ADVAIR HFA [Suspect]
     Active Substance: FLUTICASONE PROPIONATE\SALMETEROL XINAFOATE
     Indication: Product used for unknown indication
     Route: 065
  19. ALPRAZOLAM [Suspect]
     Active Substance: ALPRAZOLAM
     Indication: Product used for unknown indication
     Route: 048
  20. ALPRAZOLAM [Suspect]
     Active Substance: ALPRAZOLAM
     Route: 065
  21. ALPRAZOLAM [Suspect]
     Active Substance: ALPRAZOLAM
     Route: 065
  22. DICLOFENAC SODIUM [Suspect]
     Active Substance: DICLOFENAC SODIUM
     Indication: Product used for unknown indication
     Route: 065
  23. BUPROPION [Suspect]
     Active Substance: BUPROPION
     Indication: Product used for unknown indication
     Route: 065
  24. BUPROPION [Suspect]
     Active Substance: BUPROPION
     Indication: Product used for unknown indication
     Route: 065
  25. CETIRIZINE [Suspect]
     Active Substance: CETIRIZINE HYDROCHLORIDE
     Indication: Product used for unknown indication
     Route: 065
  26. CETIRIZINE [Suspect]
     Active Substance: CETIRIZINE HYDROCHLORIDE
     Route: 065
  27. CHLORMEZANONE [Suspect]
     Active Substance: CHLORMEZANONE
     Indication: Product used for unknown indication
     Route: 065
  28. CITALOPRAM HYDROBROMIDE [Suspect]
     Active Substance: CITALOPRAM HYDROBROMIDE
     Indication: Product used for unknown indication
     Route: 065
  29. CLONIDINE [Suspect]
     Active Substance: CLONIDINE
     Indication: Eczema
     Route: 065
  30. CODEINE PHOSPHATE\GUAIFENESIN\PHENIRAMINE MALEATE [Suspect]
     Active Substance: CODEINE PHOSPHATE\GUAIFENESIN\PHENIRAMINE MALEATE
     Indication: Product used for unknown indication
     Route: 065
  31. CRINONE [Suspect]
     Active Substance: PROGESTERONE
     Indication: Product used for unknown indication
     Route: 065
  32. CYCLOBENZAPRINE [Suspect]
     Active Substance: CYCLOBENZAPRINE
     Indication: Eczema
     Route: 048
  33. DEMEROL [Suspect]
     Active Substance: MEPERIDINE HYDROCHLORIDE
     Indication: Product used for unknown indication
     Route: 065
  34. DICLOFENAC POTASSIUM [Suspect]
     Active Substance: DICLOFENAC POTASSIUM
     Indication: Product used for unknown indication
     Route: 065
  35. DICLOFENAC SODIUM [Suspect]
     Active Substance: DICLOFENAC SODIUM
     Indication: Product used for unknown indication
     Route: 065
  36. DIPHENHYDRAMINE [Suspect]
     Active Substance: DIPHENHYDRAMINE
     Indication: Product used for unknown indication
     Route: 065
  37. DIPHENHYDRAMINE [Suspect]
     Active Substance: DIPHENHYDRAMINE
     Route: 065
  38. DOLUTEGRAVIR SODIUM [Suspect]
     Active Substance: DOLUTEGRAVIR SODIUM
     Indication: Product used for unknown indication
     Route: 065
  39. ENBREL [Suspect]
     Active Substance: ETANERCEPT
     Indication: Rheumatoid arthritis
     Route: 065
  40. FLOVENT [Suspect]
     Active Substance: FLUTICASONE PROPIONATE
     Indication: Product used for unknown indication
     Route: 065
  41. FLUCONAZOLE [Suspect]
     Active Substance: FLUCONAZOLE
     Indication: Product used for unknown indication
     Route: 065
  42. FLUTICASONE PROPIONATE [Suspect]
     Active Substance: FLUTICASONE PROPIONATE
     Indication: Product used for unknown indication
     Route: 065
  43. FLUTICASONE PROPIONATE\SALMETEROL XINAFOATE [Suspect]
     Active Substance: FLUTICASONE PROPIONATE\SALMETEROL XINAFOATE
     Indication: Product used for unknown indication
     Route: 065
  44. FUROSEMIDE [Suspect]
     Active Substance: FUROSEMIDE
     Indication: Product used for unknown indication
     Route: 065
  45. GABAPENTIN [Suspect]
     Active Substance: GABAPENTIN
     Indication: Product used for unknown indication
     Route: 065
  46. HUMIRA [Suspect]
     Active Substance: ADALIMUMAB
     Indication: Product used for unknown indication
     Route: 059
  47. HUMIRA [Suspect]
     Active Substance: ADALIMUMAB
     Route: 058
  48. KETOPROFEN [Suspect]
     Active Substance: KETOPROFEN
     Indication: Product used for unknown indication
     Route: 065
  49. LAMIVUDINE [Suspect]
     Active Substance: LAMIVUDINE
     Indication: Product used for unknown indication
     Route: 065
  50. HERBALS\SENNA LEAF\SENNOSIDES [Suspect]
     Active Substance: HERBALS\SENNA LEAF\SENNOSIDES
     Indication: Product used for unknown indication
     Route: 065
  51. METHYLPREDNISOLONE SODIUM SUCCINATE [Suspect]
     Active Substance: METHYLPREDNISOLONE SODIUM SUCCINATE
     Indication: Product used for unknown indication
     Route: 065
  52. METHYLPREDNISOLONE ACETATE [Suspect]
     Active Substance: METHYLPREDNISOLONE ACETATE
     Indication: Product used for unknown indication
     Route: 065
  53. METHYLPREDNISOLONE ACETATE [Suspect]
     Active Substance: METHYLPREDNISOLONE ACETATE
     Route: 065
  54. METHYLPREDNISOLONE ACETATE [Suspect]
     Active Substance: METHYLPREDNISOLONE ACETATE
     Route: 014
  55. PREDNISOLONE SODIUM PHOSPHATE [Suspect]
     Active Substance: PREDNISOLONE SODIUM PHOSPHATE
     Indication: Product used for unknown indication
     Route: 065
  56. PREDNISOLONE SODIUM PHOSPHATE [Suspect]
     Active Substance: PREDNISOLONE SODIUM PHOSPHATE
  57. MONTELUKAST SODIUM [Suspect]
     Active Substance: MONTELUKAST SODIUM
     Indication: Product used for unknown indication
     Route: 065
  58. MOXIFLOXACIN HYDROCHLORIDE [Suspect]
     Active Substance: MOXIFLOXACIN HYDROCHLORIDE
     Indication: Product used for unknown indication
     Route: 058
  59. NORTRIPTYLINE [Suspect]
     Active Substance: NORTRIPTYLINE
     Indication: Product used for unknown indication
     Route: 065
  60. NORTRIPTYLINE [Suspect]
     Active Substance: NORTRIPTYLINE
     Route: 065
  61. ONDANSETRON HYDROCHLORIDE [Suspect]
     Active Substance: ONDANSETRON HYDROCHLORIDE
     Indication: Product used for unknown indication
     Route: 065
  62. ORENCIA [Suspect]
     Active Substance: ABATACEPT
     Indication: Product used for unknown indication
     Route: 065
  63. ORENCIA [Suspect]
     Active Substance: ABATACEPT
     Route: 065
  64. PANTOPRAZOLE MAGNESIUM [Suspect]
     Active Substance: PANTOPRAZOLE MAGNESIUM
     Indication: Product used for unknown indication
     Route: 065
  65. PANTOPRAZOLE SODIUM [Suspect]
     Active Substance: PANTOPRAZOLE SODIUM
     Indication: Product used for unknown indication
     Route: 065
  66. HERBALS\PLANTAGO OVATA LEAF [Suspect]
     Active Substance: HERBALS\PLANTAGO OVATA LEAF
     Indication: Product used for unknown indication
     Route: 065
  67. PROGESTERONE [Suspect]
     Active Substance: PROGESTERONE
     Indication: Product used for unknown indication
     Route: 065
  68. PROGESTERONE [Suspect]
     Active Substance: PROGESTERONE
     Route: 030
  69. QUETIAPINE FUMARATE [Suspect]
     Active Substance: QUETIAPINE FUMARATE
     Indication: Product used for unknown indication
     Route: 048
  70. QUETIAPINE FUMARATE [Suspect]
     Active Substance: QUETIAPINE FUMARATE
     Route: 065
  71. RANITIDINE HYDROCHLORIDE [Suspect]
     Active Substance: RANITIDINE HYDROCHLORIDE
     Indication: Product used for unknown indication
     Route: 065
  72. REMICADE [Suspect]
     Active Substance: INFLIXIMAB
     Indication: Product used for unknown indication
     Route: 065
  73. REMICADE [Suspect]
     Active Substance: INFLIXIMAB
     Route: 042
  74. CHLORMEZANONE [Suspect]
     Active Substance: CHLORMEZANONE
     Indication: Product used for unknown indication
     Route: 065
  75. RITUXIMAB [Suspect]
     Active Substance: RITUXIMAB
     Indication: Rheumatoid arthritis
     Route: 042
  76. ALBUTEROL [Suspect]
     Active Substance: ALBUTEROL
     Indication: Product used for unknown indication
     Route: 065
  77. DICLOFENAC SODIUM [Suspect]
     Active Substance: DICLOFENAC SODIUM
     Indication: Product used for unknown indication
     Route: 065
  78. SENNA LEAF [Suspect]
     Active Substance: SENNA LEAF
     Indication: Product used for unknown indication
     Route: 048
  79. PANTOPRAZOLE MAGNESIUM [Suspect]
     Active Substance: PANTOPRAZOLE MAGNESIUM
     Indication: Product used for unknown indication
     Route: 065
  80. TEMAZEPAM [Suspect]
     Active Substance: TEMAZEPAM
     Indication: Product used for unknown indication
     Route: 065
  81. TYLENOL [Suspect]
     Active Substance: ACETAMINOPHEN
     Indication: Product used for unknown indication
     Route: 065
  82. VENLAFAXINE HYDROCHLORIDE [Suspect]
     Active Substance: VENLAFAXINE HYDROCHLORIDE
     Indication: Product used for unknown indication
     Route: 065
  83. VITAMIN C [Suspect]
     Active Substance: ASCORBIC ACID
     Indication: Product used for unknown indication
     Route: 065
  84. WELLBUTRIN [Suspect]
     Active Substance: BUPROPION HYDROCHLORIDE
     Indication: Product used for unknown indication
     Route: 065
  85. WELLBUTRIN [Suspect]
     Active Substance: BUPROPION HYDROCHLORIDE
     Route: 065
  86. XELJANZ [Suspect]
     Active Substance: TOFACITINIB CITRATE
     Indication: Rheumatoid arthritis
     Route: 065
  87. XELJANZ [Suspect]
     Active Substance: TOFACITINIB CITRATE
     Indication: Herpes zoster
     Route: 048
  88. ZOPICLONE [Suspect]
     Active Substance: ZOPICLONE
     Indication: Product used for unknown indication
     Route: 065
  89. ABACAVIR SULFATE\LAMIVUDINE [Suspect]
     Active Substance: ABACAVIR SULFATE\LAMIVUDINE
     Indication: Product used for unknown indication
     Route: 065
  90. HERBALS\PLANTAGO INDICA WHOLE [Suspect]
     Active Substance: HERBALS\PLANTAGO INDICA WHOLE
     Indication: Product used for unknown indication
     Route: 065
  91. HYDROMORPHONE HYDROCHLORIDE [Suspect]
     Active Substance: HYDROMORPHONE HYDROCHLORIDE
     Indication: Product used for unknown indication
     Route: 065
  92. OXYCODONE HYDROCHLORIDE [Concomitant]
     Active Substance: OXYCODONE HYDROCHLORIDE
     Indication: Product used for unknown indication
     Route: 065
  93. LYRICA [Concomitant]
     Active Substance: PREGABALIN
     Indication: Product used for unknown indication
     Route: 065
  94. CETIRIZINE [Concomitant]
     Active Substance: CETIRIZINE HYDROCHLORIDE
     Indication: Product used for unknown indication
     Route: 065

REACTIONS (39)
  - Asthma [Fatal]
  - Back pain [Fatal]
  - Bursitis [Fatal]
  - Coeliac disease [Fatal]
  - Constipation [Fatal]
  - Contraindicated product administered [Fatal]
  - Drug ineffective [Fatal]
  - Drug hypersensitivity [Fatal]
  - Drug intolerance [Fatal]
  - Erythema [Fatal]
  - Fatigue [Fatal]
  - Exposure during pregnancy [Fatal]
  - Fluid retention [Fatal]
  - Foetal death [Fatal]
  - Food allergy [Fatal]
  - Headache [Fatal]
  - Hepatic enzyme increased [Fatal]
  - Hyperhidrosis [Fatal]
  - Hypersensitivity [Fatal]
  - Hypertension [Fatal]
  - Immunodeficiency [Fatal]
  - Infusion related reaction [Fatal]
  - Joint swelling [Fatal]
  - Intentional product misuse [Fatal]
  - Off label use [Fatal]
  - Overdose [Fatal]
  - Pain [Fatal]
  - Prescribed overdose [Fatal]
  - Product use issue [Fatal]
  - Psoriasis [Fatal]
  - Pyrexia [Fatal]
  - Rash [Fatal]
  - Rash erythematous [Fatal]
  - Rheumatoid arthritis [Fatal]
  - Temperature regulation disorder [Fatal]
  - Treatment failure [Fatal]
  - Thrombocytopenia [Fatal]
  - Upper respiratory tract infection [Fatal]
  - Infection [Fatal]
